FAERS Safety Report 4342585-X (Version None)
Quarter: 2004Q2

REPORT INFORMATION
  Report Type: 
  Country: None (occurrence: None)
  Receive Date: 20040413
  Receipt Date: 20040331
  Transmission Date: 20050107
  Serious: Yes (Other)
  Sender: FDA-Public Use
  Company Number: 2004207478GB

PATIENT
  Age: 54 Year
  Sex: Female

DRUGS (13)
  1. ZYVOX [Suspect]
     Indication: STAPHYLOCOCCAL INFECTION
     Dosage: 600 MG, BID, ORAL
     Route: 048
     Dates: start: 20040304, end: 20040306
  2. RIFAMPICIN [Concomitant]
  3. BACLOFEN [Concomitant]
  4. CITALOPRAM [Concomitant]
  5. VANCOMYCIN [Concomitant]
  6. TROSPIUM (TROSPIUM) [Concomitant]
  7. SYTRON (SODIUM FEREDETATE) [Concomitant]
  8. LANSOPRAZOLE [Concomitant]
  9. ASCORBIC ACID [Concomitant]
  10. ZINC SULFATE (ZINC SULFATE) [Concomitant]
  11. ENSURE PLUS (FATTY ACIDS NOS, PROTEINS NOS, CARBOHYDRATES NOS, VITAMIN [Concomitant]
  12. MULTIVITAMINS (ERGOCALCIFEROL, RETINOL, PANTHENOL) [Concomitant]
  13. TRIMETHOPRIM [Concomitant]

REACTIONS (4)
  - OEDEMA PERIPHERAL [None]
  - RASH [None]
  - SEPSIS [None]
  - URINARY TRACT INFECTION [None]
